FAERS Safety Report 17975930 (Version 1)
Quarter: 2020Q3

REPORT INFORMATION
  Report Type: Spontaneous
  Country: US (occurrence: US)
  Receive Date: 20200702
  Receipt Date: 20200702
  Transmission Date: 20201103
  Serious: Yes (Other)
  Sender: FDA-Public Use
  Company Number: US-ABBVIE-20K-163-3462219-00

PATIENT
  Age: 50 Year
  Sex: Female
  Weight: 49.94 kg

DRUGS (5)
  1. XELJANZ [Suspect]
     Active Substance: TOFACITINIB CITRATE
     Route: 065
  2. XELJANZ [Suspect]
     Active Substance: TOFACITINIB CITRATE
     Route: 065
  3. HUMIRA [Suspect]
     Active Substance: ADALIMUMAB
     Indication: PRODUCT USED FOR UNKNOWN INDICATION
     Route: 058
  4. ENBREL [Suspect]
     Active Substance: ETANERCEPT
     Indication: PRODUCT USED FOR UNKNOWN INDICATION
     Dosage: 25MG 0.5 ML
     Route: 065
  5. XELJANZ [Suspect]
     Active Substance: TOFACITINIB CITRATE
     Indication: PRODUCT USED FOR UNKNOWN INDICATION
     Route: 065

REACTIONS (21)
  - Hip arthroplasty [Unknown]
  - Knee arthroplasty [Unknown]
  - Surgical failure [Unknown]
  - Surgical failure [Unknown]
  - Joint range of motion decreased [Unknown]
  - Surgical failure [Unknown]
  - Hand deformity [Not Recovered/Not Resolved]
  - Foot deformity [Not Recovered/Not Resolved]
  - Mobility decreased [Unknown]
  - Therapeutic product effect decreased [Unknown]
  - Shoulder arthroplasty [Unknown]
  - Body height decreased [Unknown]
  - Fatigue [Unknown]
  - Clostridium difficile infection [Unknown]
  - Loss of personal independence in daily activities [Unknown]
  - Hip arthroplasty [Unknown]
  - Necrosis [Unknown]
  - Arthritis [Unknown]
  - Knee arthroplasty [Unknown]
  - Surgical failure [Unknown]
  - Surgical failure [Unknown]

NARRATIVE: CASE EVENT DATE: 20060115
